FAERS Safety Report 10730519 (Version 1)
Quarter: 2015Q1

REPORT INFORMATION
  Report Type: Spontaneous
  Country: US (occurrence: None)
  Receive Date: 20150120
  Receipt Date: 20150120
  Transmission Date: 20150721
  Serious: No
  Sender: FDA-Public Use
  Company Number: None

PATIENT
  Age: 40 Year
  Sex: Male
  Weight: 86.18 kg

DRUGS (2)
  1. BACKAID MAX [Suspect]
     Active Substance: ACETAMINOPHEN\PAMABROM
     Dosage: 2 TABLETS
     Route: 048
     Dates: start: 20150117
  2. BACKAID MAX [Suspect]
     Active Substance: ACETAMINOPHEN\PAMABROM
     Indication: BACK PAIN
     Dosage: 2 TABLETS
     Route: 048
     Dates: start: 20150117

REACTIONS (4)
  - Wrong drug administered [None]
  - Product label confusion [None]
  - Hyperhidrosis [None]
  - Palpitations [None]

NARRATIVE: CASE EVENT DATE: 20150117
